FAERS Safety Report 25604200 (Version 1)
Quarter: 2025Q3

REPORT INFORMATION
  Report Type: Spontaneous
  Country: US (occurrence: US)
  Receive Date: 20250725
  Receipt Date: 20250725
  Transmission Date: 20251021
  Serious: No
  Sender: IPSEN BIOPHARMACEUTICALS, INC.
  Company Number: US-IPSEN Group, Research and Development-2025-18033

PATIENT
  Age: 70 Year
  Sex: Female
  Weight: 58.5 kg

DRUGS (17)
  1. IQIRVO [Suspect]
     Active Substance: ELAFIBRANOR
     Indication: Primary biliary cholangitis
  2. ETHACRYNIC ACID [Concomitant]
     Active Substance: ETHACRYNIC ACID
  3. SPIRONOLACTONE [Concomitant]
     Active Substance: SPIRONOLACTONE
  4. MESALAMINE [Concomitant]
     Active Substance: MESALAMINE
  5. URSODIOL [Concomitant]
     Active Substance: URSODIOL
  6. METOPROLOL SUCCINATE [Concomitant]
     Active Substance: METOPROLOL SUCCINATE
  7. ESOMEPRAZOLE MAGNESIUM [Concomitant]
     Active Substance: ESOMEPRAZOLE MAGNESIUM
  8. SIMVASTATIN [Concomitant]
     Active Substance: SIMVASTATIN
  9. IRBESARTAN [Concomitant]
     Active Substance: IRBESARTAN
  10. OZEMPIC [Concomitant]
     Active Substance: SEMAGLUTIDE
  11. HUMALOG [Concomitant]
     Active Substance: INSULIN LISPRO
  12. LEVEMIR [Concomitant]
     Active Substance: INSULIN DETEMIR
  13. METFORMIN OSMOTIC [Concomitant]
  14. ELIQUIS [Concomitant]
     Active Substance: APIXABAN
  15. IRON [Concomitant]
     Active Substance: IRON
  16. BIOTIN [Concomitant]
     Active Substance: BIOTIN
  17. VITAMIN D [Concomitant]
     Active Substance: VITAMIN D NOS

REACTIONS (1)
  - COVID-19 [Unknown]
